FAERS Safety Report 13232116 (Version 1)
Quarter: 2017Q1

REPORT INFORMATION
  Report Type: Spontaneous
  Country: GB (occurrence: GB)
  Receive Date: 20170214
  Receipt Date: 20170214
  Transmission Date: 20170428
  Serious: Yes (Other)
  Sender: FDA-Public Use
  Company Number: GB-MYLANLABS-2017M1008605

PATIENT

DRUGS (3)
  1. CIPROFLOXACIN. [Suspect]
     Active Substance: CIPROFLOXACIN
     Indication: ESCHERICHIA URINARY TRACT INFECTION
     Dosage: 250 MG, BID
     Route: 048
  2. IBUPROFEN. [Suspect]
     Active Substance: IBUPROFEN
  3. CIPROFLOXACIN. [Suspect]
     Active Substance: CIPROFLOXACIN
     Indication: STAPHYLOCOCCAL INFECTION
     Dosage: 500 MG, BID
     Route: 048

REACTIONS (2)
  - Staphylococcal infection [Unknown]
  - Malaise [Unknown]
